FAERS Safety Report 6360335-2 (Version None)
Quarter: 2009Q3

REPORT INFORMATION
  Report Type: 
  Country: None (occurrence: None)
  Receive Date: 20090917
  Receipt Date: 20090909
  Transmission Date: 20100115
  Serious: Yes (Other)
  Sender: FDA-Public Use
  Company Number: PHEH2009US10831

PATIENT
  Sex: Male

DRUGS (3)
  1. GENTEAL MODERATE LUBRICANT EYE DROPS (NVO) [Suspect]
  2. AZOPT [Interacting]
  3. LUMIGAN [Concomitant]

REACTIONS (2)
  - DRUG INTERACTION [None]
  - INTRAOCULAR PRESSURE INCREASED [None]
